FAERS Safety Report 17541450 (Version 3)
Quarter: 2020Q4

REPORT INFORMATION
  Report Type: Report from Study
  Country: CA (occurrence: CA)
  Receive Date: 20200313
  Receipt Date: 20201126
  Transmission Date: 20210113
  Serious: Yes (Hospitalization, Other)
  Sender: FDA-Public Use
  Company Number: CA-HLS-202000045

PATIENT
  Age: 54 Year
  Sex: Female

DRUGS (1)
  1. CLOZARIL [Suspect]
     Active Substance: CLOZAPINE
     Dosage: 200MG AT SUPPER
     Route: 048
     Dates: start: 19930623

REACTIONS (6)
  - Febrile neutropenia [Unknown]
  - Renal failure [Unknown]
  - Leukopenia [Not Recovered/Not Resolved]
  - Urinary tract disorder [Unknown]
  - Neutropenia [Not Recovered/Not Resolved]
  - Uterine cancer [Unknown]

NARRATIVE: CASE EVENT DATE: 20190408
